FAERS Safety Report 23468090 (Version 2)
Quarter: 2024Q1

REPORT INFORMATION
  Report Type: Spontaneous
  Country: DE (occurrence: DE)
  Receive Date: 20240201
  Receipt Date: 20240318
  Transmission Date: 20240410
  Serious: Yes (Hospitalization, Other)
  Sender: FDA-Public Use
  Company Number: None

PATIENT
  Sex: Female
  Weight: 52 kg

DRUGS (12)
  1. HUMIRA [Suspect]
     Active Substance: ADALIMUMAB
     Indication: Crohn^s disease
     Route: 058
     Dates: start: 20161215, end: 201708
  2. RINVOQ [Suspect]
     Active Substance: UPADACITINIB
     Indication: Crohn^s disease
     Route: 048
     Dates: start: 20230814, end: 20231018
  3. AZATHIOPRINE [Concomitant]
     Active Substance: AZATHIOPRINE
     Indication: Crohn^s disease
     Dosage: UNKNOWN, DAILY
     Dates: start: 201111, end: 20190614
  4. USTEKINUMAB [Concomitant]
     Active Substance: USTEKINUMAB
     Indication: Crohn^s disease
     Route: 058
     Dates: start: 20190729, end: 202308
  5. STELARA [Concomitant]
     Active Substance: USTEKINUMAB
     Indication: Crohn^s disease
     Dosage: LAST ADMIN DATE: 2022
     Dates: start: 20220301
  6. STELARA [Concomitant]
     Active Substance: USTEKINUMAB
     Indication: Crohn^s disease
     Dosage: LAST ADMIN DATE: 2022
     Dates: start: 20220704
  7. STELARA [Concomitant]
     Active Substance: USTEKINUMAB
     Indication: Crohn^s disease
     Dates: start: 20210711
  8. STELARA [Concomitant]
     Active Substance: USTEKINUMAB
     Indication: Crohn^s disease
     Dosage: LAST ADMIN DATE: 2020
     Dates: start: 20200831
  9. STELARA [Concomitant]
     Active Substance: USTEKINUMAB
     Indication: Crohn^s disease
  10. REMICADE [Concomitant]
     Active Substance: INFLIXIMAB
     Indication: Crohn^s disease
     Route: 042
     Dates: start: 20170818, end: 201906
  11. COVID-19 vaccine [Concomitant]
     Indication: COVID-19 immunisation
     Dosage: ONE IN ONCE
     Route: 030
  12. SKYRIZI [Suspect]
     Active Substance: RISANKIZUMAB-RZAA
     Indication: Crohn^s disease
     Route: 042
     Dates: start: 202311

REACTIONS (23)
  - Ophthalmic herpes zoster [Recovered/Resolved]
  - Crohn^s disease [Unknown]
  - Diarrhoea [Recovering/Resolving]
  - Therapeutic product effect decreased [Unknown]
  - Pain in extremity [Unknown]
  - Faecal calprotectin increased [Unknown]
  - Abdominal pain upper [Unknown]
  - Vitamin D decreased [Unknown]
  - Flatulence [Unknown]
  - Neck pain [Unknown]
  - Alopecia [Unknown]
  - Stress at work [Unknown]
  - Stress [Unknown]
  - Defaecation urgency [Unknown]
  - Headache [Recovered/Resolved]
  - Intraductal papilloma of breast [Unknown]
  - Eye pain [Recovered/Resolved]
  - Skin disorder [Unknown]
  - Abnormal faeces [Unknown]
  - Skin lesion [Unknown]
  - Infection susceptibility increased [Unknown]
  - Drug specific antibody present [Unknown]
  - Skin disorder [Recovered/Resolved]

NARRATIVE: CASE EVENT DATE: 20170101
